FAERS Safety Report 8192535-3 (Version None)
Quarter: 2012Q1

REPORT INFORMATION
  Report Type: 
  Country: None (occurrence: None)
  Receive Date: 20120308
  Receipt Date: 20120229
  Transmission Date: 20120608
  Serious: No
  Sender: FDA-Public Use
  Company Number: US-BIOGENIDEC-2012BI007475

PATIENT
  Sex: Female

DRUGS (4)
  1. AVONEX [Suspect]
     Indication: MULTIPLE SCLEROSIS
     Route: 030
  2. AVONEX [Suspect]
     Route: 030
     Dates: start: 20090508, end: 20100125
  3. AVONEX [Suspect]
     Route: 030
     Dates: start: 20100511
  4. AVONEX [Suspect]
     Route: 030
     Dates: start: 19990201, end: 20081020

REACTIONS (2)
  - VISION BLURRED [None]
  - MULTIPLE SCLEROSIS RELAPSE [None]
